FAERS Safety Report 10398836 (Version 5)
Quarter: 2014Q4

REPORT INFORMATION
  Report Type: Spontaneous
  Country: US (occurrence: None)
  Receive Date: 20140819
  Receipt Date: 20141112
  Transmission Date: 20150528
  Serious: Yes (Hospitalization, Other)
  Sender: FDA-Public Use
  Company Number: 2014-US-005244

PATIENT
  Age: 51 Year
  Sex: Female
  Weight: 61.2 kg

DRUGS (10)
  1. PREMARIN (ESTROGENS CONJUGATED) [Concomitant]
  2. IRON (FERROUS SULFATE) [Concomitant]
  3. XYREM [Suspect]
     Active Substance: SODIUM OXYBATE
     Indication: NARCOLEPSY
     Route: 048
     Dates: start: 201402, end: 2014
  4. HYDROCODONE (HYDROCODONE) [Concomitant]
     Active Substance: HYDROCODONE
  5. BONIVA [Concomitant]
     Active Substance: IBANDRONATE SODIUM
  6. PROTONIX [Concomitant]
     Active Substance: PANTOPRAZOLE SODIUM
  7. VIVELLE-DOT (ESTRADIOL) [Concomitant]
  8. DEXTROAMPHETAMINE (DEXAMFETAMINE) [Concomitant]
  9. IMITREX [Concomitant]
     Active Substance: SUMATRIPTAN\SUMATRIPTAN SUCCINATE
  10. PROCTOZONE-HC (HYDROCORTISONE) [Concomitant]

REACTIONS (8)
  - Pulmonary fibrosis [None]
  - Dry mouth [None]
  - Cystopexy [None]
  - Cervix operation [None]
  - Hypertension [None]
  - Dry eye [None]
  - Insomnia [None]
  - Cataract [None]

NARRATIVE: CASE EVENT DATE: 20140428
